FAERS Safety Report 5047448-2 (Version None)
Quarter: 2006Q3

REPORT INFORMATION
  Report Type: 
  Country: None (occurrence: None)
  Receive Date: 20060703
  Receipt Date: 20060602
  Transmission Date: 20061208
  Serious: Yes (Death, Life-Threatening, Other)
  Sender: FDA-Public Use
  Company Number: 2006066731

PATIENT
  Age: 26 Year
  Sex: Female

DRUGS (7)
  1. VIRLIX (CETIRIZINE) [Suspect]
     Indication: ILL-DEFINED DISORDER
     Dosage: ORAL
     Route: 048
     Dates: start: 20060118, end: 20060223
  2. ATARAX [Suspect]
     Indication: ILL-DEFINED DISORDER
     Dosage: ORAL
     Route: 048
     Dates: start: 20060112, end: 20060223
  3. MIRENA [Suspect]
     Indication: CONTRACEPTION
     Dosage: OTHER
     Dates: start: 20050928, end: 20060225
  4. HERBAL PREPARATION (HERBAL PREPARATION) [Suspect]
     Indication: ILL-DEFINED DISORDER
     Dosage: ORAL
     Route: 048
     Dates: start: 20051201, end: 20060223
  5. MEQUITAZINE (MEQUITAZINE) [Suspect]
     Indication: ILL-DEFINED DISORDER
     Dosage: ORAL
     Route: 048
     Dates: start: 20060103, end: 20060118
  6. CANOL (HERBAL EXTRACTS NOS) [Concomitant]
  7. VALACYCLOVIR [Concomitant]

REACTIONS (11)
  - ACNE [None]
  - CEREBRAL ASPERGILLOSIS [None]
  - COAGULATION FACTOR V LEVEL DECREASED [None]
  - COMPLICATIONS OF TRANSPLANTED LIVER [None]
  - HEPATIC ENCEPHALOPATHY [None]
  - HEPATIC FAILURE [None]
  - HEPATITIS FULMINANT [None]
  - LIVER TRANSPLANT [None]
  - PROTHROMBIN LEVEL INCREASED [None]
  - SURGICAL PROCEDURE REPEATED [None]
  - TRANSPLANT FAILURE [None]
